FAERS Safety Report 15593634 (Version 1)
Quarter: 2018Q4

REPORT INFORMATION
  Report Type: Report from Study
  Country: SE (occurrence: SE)
  Receive Date: 20181106
  Receipt Date: 20181106
  Transmission Date: 20190205
  Serious: Yes (Other)
  Sender: FDA-Public Use
  Company Number: SE-JNJFOC-20181034411

PATIENT

DRUGS (1)
  1. SIRTURO [Suspect]
     Active Substance: BEDAQUILINE FUMARATE
     Indication: PRODUCT USED FOR UNKNOWN INDICATION
     Route: 048

REACTIONS (14)
  - Wrong technique in product usage process [Unknown]
  - Constipation [Unknown]
  - Tonsillitis [Unknown]
  - Rash papular [Unknown]
  - Diarrhoea [Unknown]
  - Thrombophlebitis [Unknown]
  - Rash pruritic [Unknown]
  - Atrioventricular block [Unknown]
  - Acne [Unknown]
  - Pruritus [Unknown]
  - Libido increased [Unknown]
  - Headache [Unknown]
  - Rash [Unknown]
  - Off label use [Unknown]
